FAERS Safety Report 20714440 (Version 1)
Quarter: 2022Q2

REPORT INFORMATION
  Report Type: Spontaneous
  Country: GB (occurrence: GB)
  Receive Date: 20220415
  Receipt Date: 20220415
  Transmission Date: 20220721
  Serious: Yes (Other)
  Sender: FDA-Public Use
  Company Number: None

PATIENT
  Age: 79 Year
  Sex: Male
  Weight: 60 kg

DRUGS (11)
  1. RIVASTIGMINE [Suspect]
     Active Substance: RIVASTIGMINE
     Indication: Product used for unknown indication
     Dosage: UNK
     Dates: start: 20220407
  2. RIVASTIGMINE [Concomitant]
     Active Substance: RIVASTIGMINE
     Dosage: 1 DOSAGE FORM, QD (REMOVE OLD PATCH BE...)
     Route: 062
     Dates: start: 20211201
  3. CHLORAMPHENICOL [Concomitant]
     Active Substance: CHLORAMPHENICOL
     Dosage: 1 DOSAGE FORM, QID
     Route: 047
     Dates: start: 20220314
  4. CITALOPRAM [Concomitant]
     Active Substance: CITALOPRAM HYDROBROMIDE
     Indication: Anxiety
     Dosage: 1 DOSAGE FORM, QD
     Dates: start: 20211201
  5. FLUDROCORTISONE [Concomitant]
     Active Substance: FLUDROCORTISONE
     Dosage: 2 DOSAGE FORM, AM 9BEFORE BREAKFAST)
     Dates: start: 20211201
  6. BUTYLSCOPOLAMINE BROMIDE [Concomitant]
     Active Substance: BUTYLSCOPOLAMINE BROMIDE
     Indication: Flatulence
     Dosage: 2 DOSAGE FORM, QID
     Dates: start: 20211201, end: 20220401
  7. KETOCONAZOLE [Concomitant]
     Active Substance: KETOCONAZOLE
     Dosage: 1 DOSAGE FORM, QD (AS DIRECTED)
     Dates: start: 20211201
  8. POLYETHYLENE GLYCOLS [Concomitant]
     Active Substance: POLYETHYLENE GLYCOLS
     Dosage: 1 DOSAGE FORM, PRN(UP TO 8 TIMES A DAY)
     Dates: start: 20211201
  9. MEBEVERINE HYDROCHLORIDE [Concomitant]
     Active Substance: MEBEVERINE HYDROCHLORIDE
     Dosage: 1 DOSAGE FORM, TID (AS DIRECTED BY CON...)
     Dates: start: 20220401
  10. MOMETASONE [Concomitant]
     Active Substance: MOMETASONE
     Dosage: 1 DOSAGE FORM, QD (TO BE USED IN EACH NOSTRIL)
     Route: 045
     Dates: start: 20211201
  11. TERBINAFINE [Concomitant]
     Active Substance: TERBINAFINE
     Dosage: 1 DOSAGE FORM, QD
     Dates: start: 20220322

REACTIONS (1)
  - Gastrointestinal disorder [Recovered/Resolved]

NARRATIVE: CASE EVENT DATE: 20220407
